FAERS Safety Report 5368386-1 (Version None)
Quarter: 2007Q2

REPORT INFORMATION
  Report Type: 
  Country: None (occurrence: None)
  Receive Date: 20070622
  Receipt Date: 20070622
  Transmission Date: 20071010
  Serious: Yes (Hospitalization)
  Sender: FDA-Public Use
  Company Number: None

PATIENT
  Age: 15 Year
  Sex: Female
  Weight: 40 kg

DRUGS (11)
  1. IRESSA [Suspect]
     Indication: ADENOCARCINOMA
     Dosage: 200 MG QD X 12 DAYS PO
     Route: 048
     Dates: start: 20070613, end: 20070619
  2. IRINOTECAN HCL [Suspect]
     Indication: ADENOCARCINOMA
     Dosage: 13 MG -QD X 5 DAYS- X 2 PO
     Route: 048
     Dates: start: 20070613, end: 20070617
  3. FENTANYL [Concomitant]
  4. ELITEK [Concomitant]
  5. METHADONE HCL [Concomitant]
  6. ONDANSETRON [Concomitant]
  7. OMEPRAZOLE [Concomitant]
  8. SULFAMETHOXAZOLE AND TRIMETHOPRIM [Concomitant]
  9. MEPHYTON [Concomitant]
  10. LORAZEPAM [Concomitant]
  11. DIPHENHYDRAMINE HCL [Concomitant]

REACTIONS (13)
  - BLOOD URINE PRESENT [None]
  - CULTURE URINE POSITIVE [None]
  - HAEMATEMESIS [None]
  - HAEMATOCRIT DECREASED [None]
  - HAEMOGLOBIN DECREASED [None]
  - NAUSEA [None]
  - NEUTROPHIL COUNT DECREASED [None]
  - OCCULT BLOOD POSITIVE [None]
  - PROTHROMBIN TIME PROLONGED [None]
  - RED BLOOD CELLS URINE POSITIVE [None]
  - RESPIRATORY RATE INCREASED [None]
  - URINE KETONE BODY PRESENT [None]
  - VOMITING [None]
